FAERS Safety Report 9558482 (Version 1)
Quarter: 2013Q3

REPORT INFORMATION
  Report Type: Spontaneous
  Country: US (occurrence: US)
  Receive Date: 20130926
  Receipt Date: 20130926
  Transmission Date: 20140515
  Serious: No
  Sender: FDA-Public Use
  Company Number: US-BIOGENIDEC-2013BI043962

PATIENT
  Age: 55 Year
  Sex: Female

DRUGS (5)
  1. TECFIDERA [Suspect]
     Indication: MULTIPLE SCLEROSIS
     Route: 048
     Dates: start: 20130501, end: 20130507
  2. TECFIDERA [Suspect]
     Indication: MULTIPLE SCLEROSIS
     Route: 048
     Dates: start: 20130508, end: 20130509
  3. TRIAMTERENE- HCTZ [Concomitant]
  4. ZYLOPRIM [Concomitant]
  5. SYNTHROID [Concomitant]

REACTIONS (5)
  - Asthenia [Recovered/Resolved]
  - Tremor [Recovered/Resolved]
  - Lethargy [Recovered/Resolved]
  - Dehydration [Recovered/Resolved]
  - Flushing [Recovered/Resolved]
